FAERS Safety Report 7402665-9 (Version None)
Quarter: 2011Q2

REPORT INFORMATION
  Report Type: 
  Country: None (occurrence: None)
  Receive Date: 20110408
  Receipt Date: 20110329
  Transmission Date: 20111010
  Serious: Yes (Other)
  Sender: FDA-Public Use
  Company Number: CA-JNJFOC-20110312620

PATIENT
  Age: 50 Year
  Sex: Female
  Weight: 56.7 kg

DRUGS (2)
  1. IMODIUM [Suspect]
     Route: 048
  2. IMODIUM [Suspect]
     Indication: DIARRHOEA
     Dosage: 2 CAPLETS AS DIRECTED
     Route: 048

REACTIONS (4)
  - LUNG INFECTION [None]
  - FEELING ABNORMAL [None]
  - DIZZINESS [None]
  - ABDOMINAL DISCOMFORT [None]
